FAERS Safety Report 11547803 (Version 3)
Quarter: 2015Q4

REPORT INFORMATION
  Report Type: Report from Study
  Country: US (occurrence: US)
  Receive Date: 20150924
  Receipt Date: 20151020
  Transmission Date: 20160304
  Serious: Yes (Hospitalization, Other)
  Sender: FDA-Public Use
  Company Number: US-AMGEN-USASP2015096598

PATIENT
  Age: 70 Year
  Sex: Female

DRUGS (1)
  1. ENBREL [Suspect]
     Active Substance: ETANERCEPT
     Indication: RHEUMATOID ARTHRITIS
     Dosage: 50 MG, QWK
     Route: 065
     Dates: start: 20140624

REACTIONS (4)
  - Pneumonia [Unknown]
  - Surgery [Recovered/Resolved]
  - Staphylococcal infection [Unknown]
  - Incision site infection [Not Recovered/Not Resolved]

NARRATIVE: CASE EVENT DATE: 2015
